FAERS Safety Report 6402722-X (Version None)
Quarter: 2009Q4

REPORT INFORMATION
  Report Type: 
  Country: None (occurrence: None)
  Receive Date: 20091013
  Receipt Date: 20091001
  Transmission Date: 20100525
  Serious: Yes (Life-Threatening, Hospitalization)
  Sender: FDA-Public Use
  Company Number: SAL/IMIQUIMOD-07

PATIENT
  Sex: Male

DRUGS (9)
  1. IMIQUIMOD [Suspect]
     Indication: ACTINIC KERATOSIS
     Dosage: 1 APPL TWICE A WEEK, 060
  2. ALDARA [Suspect]
     Indication: ACTINIC KERATOSIS
     Dosage: 1 APPL TWICE A WEEK, 060
  3. LIDOCAINE AND EPINEPHRINE [Concomitant]
  4. OLMESERTAN MEDOXOMIL HYDROCHLOROTHIAZIDE [Concomitant]
  5. AMLODIPINE BESYLATE [Concomitant]
  6. SIMVASTATIN [Concomitant]
  7. METOPROLOL SUCCINATE [Concomitant]
  8. AMIODARONE [Concomitant]
  9. WARFARIN SODIUM [Concomitant]

REACTIONS (3)
  - CARDIAC ARREST [None]
  - COMA [None]
  - LUNG DISORDER [None]
